FAERS Safety Report 10644465 (Version 2)
Quarter: 2014Q4

REPORT INFORMATION
  Report Type: Spontaneous
  Country: IT (occurrence: IT)
  Receive Date: 20141210
  Receipt Date: 20141210
  Transmission Date: 20150529
  Serious: Yes (Other)
  Sender: FDA-Public Use
  Company Number: IT-TEVA-521908ISR

PATIENT
  Age: 52 Year
  Sex: Male

DRUGS (6)
  1. CARBAMAZEPINE. [Suspect]
     Active Substance: CARBAMAZEPINE
     Indication: EPILEPSY
     Dosage: 3 DF DAILY
     Route: 048
     Dates: start: 20140101, end: 20141005
  2. DELORAZEPAM ABC [Concomitant]
     Indication: PRODUCT USED FOR UNKNOWN INDICATION
     Route: 048
  3. SERENASE [Concomitant]
     Active Substance: HALOPERIDOL
     Indication: PRODUCT USED FOR UNKNOWN INDICATION
  4. GARDENALE - 50 MG COMPRESSE - SANOFI - AVENTIS S.P.A. [Suspect]
     Active Substance: PHENOBARBITAL
     Indication: EPILEPSY
     Dosage: 2 DF DAILY
     Route: 048
     Dates: start: 20140101, end: 20141005
  5. MAVERAL - 50 MG COMPRESSE RIVESTITE CON FILM - ABBOTT S.R.L [Suspect]
     Active Substance: FLUVOXAMINE MALEATE
     Indication: DEPRESSION
     Dosage: 2 DF DAILY
     Route: 048
  6. DEPAKIN - 200 MG COMPRESSE GASTRORESISTENTI - SANOFI-AVENTIS S.P.A [Suspect]
     Active Substance: VALPROATE SODIUM
     Indication: EPILEPSY
     Dosage: 2 DF DAILY
     Route: 048
     Dates: start: 20140101, end: 20141005

REACTIONS (2)
  - Hyponatraemic syndrome [Recovering/Resolving]
  - Sopor [Recovering/Resolving]

NARRATIVE: CASE EVENT DATE: 20141005
